FAERS Safety Report 9104901 (Version 1)
Quarter: 2013Q1

REPORT INFORMATION
  Report Type: Spontaneous
  Country: US (occurrence: US)
  Receive Date: 20130220
  Receipt Date: 20130220
  Transmission Date: 20140127
  Serious: Yes (Other)
  Sender: FDA-Public Use
  Company Number: US-ASTRAZENECA-2006UW28100

PATIENT
  Age: 79 Year
  Sex: Female
  Weight: 107.5 kg

DRUGS (13)
  1. TOPROL XL [Suspect]
     Indication: HYPERTENSION
     Route: 048
     Dates: start: 20061215, end: 2008
  2. TOPROL XL [Suspect]
     Indication: CARDIAC DISORDER
     Route: 048
     Dates: start: 20061215, end: 2008
  3. TOPROL XL [Suspect]
     Indication: HYPERTENSION
     Dosage: 75 MG,DAILY, UNKNOWN MANUFACTURER
     Route: 048
     Dates: start: 2008, end: 2011
  4. TOPROL XL [Suspect]
     Indication: CARDIAC DISORDER
     Dosage: 75 MG,DAILY, UNKNOWN MANUFACTURER
     Route: 048
     Dates: start: 2008, end: 2011
  5. TOPROL XL [Suspect]
     Indication: HYPERTENSION
     Dosage: 50 MG, BID, UNKNOWN MANUFACTURER
     Route: 048
     Dates: start: 2008
  6. TOPROL XL [Suspect]
     Indication: CARDIAC DISORDER
     Dosage: 50 MG, BID, UNKNOWN MANUFACTURER
     Route: 048
     Dates: start: 2008
  7. NORVASC [Concomitant]
  8. BABY ASA [Concomitant]
  9. AMLODIPINE [Concomitant]
     Route: 048
     Dates: start: 2011
  10. CHOLESTOFF [Concomitant]
     Indication: BLOOD CHOLESTEROL INCREASED
     Route: 048
  11. GRAPE SEED, SELENIUM, BILBERRY TABLET [Concomitant]
     Indication: PERIPHERAL VASCULAR DISORDER
     Route: 048
     Dates: start: 2004
  12. GRAPE SEED, SELENIUM, BILBERRY TABLET [Concomitant]
     Indication: DIURETIC THERAPY
     Route: 048
     Dates: start: 2004
  13. MANY OTHER VITAMINS AND HERBAL SUPPLEMENTS [Concomitant]

REACTIONS (21)
  - Myocardial infarction [Unknown]
  - Nasal congestion [Unknown]
  - Pain in extremity [Unknown]
  - Poor peripheral circulation [Unknown]
  - Eye disorder [Unknown]
  - Myalgia [Unknown]
  - Dry eye [Unknown]
  - Blood cholesterol increased [Unknown]
  - Breast pain [Unknown]
  - Breast discomfort [Unknown]
  - Headache [Unknown]
  - Hypoaesthesia [Unknown]
  - Vision blurred [Unknown]
  - Tinnitus [Unknown]
  - Fatigue [Unknown]
  - Memory impairment [Unknown]
  - Oedema peripheral [Unknown]
  - Alopecia [Unknown]
  - Fluid retention [Unknown]
  - Chest pain [Unknown]
  - Off label use [Unknown]
